FAERS Safety Report 24601014 (Version 2)
Quarter: 2024Q4

REPORT INFORMATION
  Report Type: Spontaneous
  Country: DE (occurrence: DE)
  Receive Date: 20241110
  Receipt Date: 20241128
  Transmission Date: 20250114
  Serious: Yes (Other)
  Sender: AMGEN
  Company Number: DE-DCGMA-24204127

PATIENT
  Age: 25 Year
  Sex: Female

DRUGS (1)
  1. AIMOVIG [Suspect]
     Active Substance: ERENUMAB-AOOE
     Indication: Migraine
     Dosage: 70 MG, Q4W (EVERY 4 WEEKS)
     Route: 058
     Dates: start: 2024, end: 20241024

REACTIONS (4)
  - Dyschezia [Not Recovered/Not Resolved]
  - Faecaloma [Not Recovered/Not Resolved]
  - Constipation [Not Recovered/Not Resolved]
  - Abdominal pain [Not Recovered/Not Resolved]

NARRATIVE: CASE EVENT DATE: 20240909
